FAERS Safety Report 17551050 (Version 1)
Quarter: 2020Q1

REPORT INFORMATION
  Report Type: Spontaneous
  Country: US (occurrence: US)
  Receive Date: 20200309
  Receipt Date: 20200309
  Transmission Date: 20200409
  Serious: No
  Sender: FDA-Public Use
  Company Number: None

PATIENT
  Age: 60 Year
  Sex: Female

DRUGS (2)
  1. WHISPERJECT [Suspect]
     Active Substance: DEVICE
  2. GLATIRAMER 40MG PFS INJ (12/BOX) [Suspect]
     Active Substance: GLATIRAMER
     Route: 058
     Dates: start: 202003

REACTIONS (3)
  - Injection site swelling [None]
  - Injection site erythema [None]
  - Injection site ulcer [None]

NARRATIVE: CASE EVENT DATE: 20200309
